FAERS Safety Report 9179948 (Version 1)
Quarter: 2013Q1

REPORT INFORMATION
  Report Type: Spontaneous
  Country: US (occurrence: US)
  Receive Date: 20130321
  Receipt Date: 20130321
  Transmission Date: 20140127
  Serious: Yes (Other)
  Sender: FDA-Public Use
  Company Number: US-PFIZER INC-2013090848

PATIENT
  Sex: Female

DRUGS (3)
  1. LYRICA [Suspect]
     Indication: CONVULSION
     Dosage: UNK
     Dates: start: 2009
  2. LYRICA [Suspect]
     Dosage: 100 MG, 2X/DAY
  3. PROMETRIUM [Suspect]
     Dosage: UNK
     Dates: end: 201208

REACTIONS (3)
  - Convulsion [Recovered/Resolved]
  - Somnolence [Unknown]
  - Feeling abnormal [Unknown]
